FAERS Safety Report 8977993 (Version 3)
Quarter: 2013Q1

REPORT INFORMATION
  Report Type: Spontaneous
  Country: FR (occurrence: FR)
  Receive Date: 20121219
  Receipt Date: 20130118
  Transmission Date: 20140127
  Serious: Yes (Hospitalization)
  Sender: FDA-Public Use
  Company Number: FR-PFIZER INC-2012321540

PATIENT
  Age: 84 Year
  Sex: Male

DRUGS (14)
  1. CORDARONE [Suspect]
     Indication: ATRIAL FIBRILLATION
     Dosage: 200 MG 5/7
     Route: 048
     Dates: end: 20121013
  2. EFFEXOR LP [Suspect]
     Indication: DEPRESSION
     Dosage: 37.5 MG DAILY
     Route: 048
     Dates: start: 20120929, end: 20121013
  3. EFFEXOR LP [Suspect]
     Dosage: 75 MG, DAILY
     Route: 048
     Dates: start: 20120929, end: 20121013
  4. TEMESTA [Suspect]
     Indication: DEPRESSION
     Dosage: 1 MG, 4X/DAY
     Route: 048
     Dates: end: 20121013
  5. IXPRIM [Suspect]
     Indication: PAIN
     Dosage: 3 DOSAGE FORM DAILY;AS NEEDED
     Route: 048
     Dates: start: 20120929, end: 20121013
  6. RISPERDAL [Suspect]
     Indication: DEMENTIA
     Dosage: 0.5 MG, DAILY
     Route: 048
     Dates: start: 20120929, end: 20121013
  7. ELISOR [Suspect]
     Indication: DYSLIPIDAEMIA
     Dosage: 20 MG, DAILY
     Route: 048
     Dates: end: 20121013
  8. ZANIDIP [Suspect]
     Indication: PRODUCT USED FOR UNKNOWN INDICATION
     Dosage: 10 MG, DAILY
     Route: 048
     Dates: end: 20121013
  9. PARIET [Suspect]
     Indication: PRODUCT USED FOR UNKNOWN INDICATION
     Dosage: 20 MG, DAILY
     Route: 048
     Dates: end: 20121013
  10. LASILIX [Concomitant]
     Dosage: UNK
     Dates: end: 20121013
  11. KARDEGIC [Concomitant]
     Dosage: UNK
     Dates: end: 20121013
  12. LYRICA [Concomitant]
     Dosage: UNK
     Dates: end: 20121013
  13. ROCEPHINE [Concomitant]
     Indication: LUNG INFECTION
     Dosage: UNK
     Dates: start: 20121012, end: 20121013
  14. FLAGYL [Concomitant]
     Indication: LUNG INFECTION
     Dosage: UNK
     Dates: start: 20121012, end: 20121013

REACTIONS (3)
  - Liver injury [Recovered/Resolved]
  - Lung infection [Unknown]
  - Blood creatinine increased [Unknown]
